FAERS Safety Report 6245938-8 (Version None)
Quarter: 2009Q2

REPORT INFORMATION
  Report Type: 
  Country: None (occurrence: None)
  Receive Date: 20090626
  Receipt Date: 20080719
  Transmission Date: 20091009
  Serious: No
  Sender: FDA-Public Use
  Company Number: A0739815A

PATIENT
  Sex: Female

DRUGS (1)
  1. IMITREX [Suspect]
     Indication: MIGRAINE
     Route: 048

REACTIONS (2)
  - DISABILITY [None]
  - THERAPEUTIC RESPONSE DECREASED [None]
